FAERS Safety Report 4418075-2 (Version None)
Quarter: 2004Q3

REPORT INFORMATION
  Report Type: 
  Country: None (occurrence: None)
  Receive Date: 20040730
  Receipt Date: 20040720
  Transmission Date: 20050211
  Serious: Yes (Hospitalization)
  Sender: FDA-Public Use
  Company Number: 2004PK01258

PATIENT
  Age: 52 Year
  Sex: Female
  Weight: 108 kg

DRUGS (7)
  1. NOLVADEX [Suspect]
     Indication: BREAST CANCER
     Dosage: 20 MG DAILY PO
     Route: 048
     Dates: start: 20010510
  2. ZOLADEX [Suspect]
     Indication: BREAST CANCER
     Dosage: 3.6 MG Q4WK SQ
     Route: 058
     Dates: start: 20010510
  3. PANTOLOC [Concomitant]
  4. NORMOXIN [Concomitant]
  5. NORVASC [Concomitant]
  6. DILATREND [Concomitant]
  7. NOVOMIX [Concomitant]

REACTIONS (5)
  - BLOOD GLUCOSE INCREASED [None]
  - CHOLELITHIASIS [None]
  - GALLBLADDER DISORDER [None]
  - HYPERTROPHY [None]
  - PANCREATITIS ACUTE [None]
